FAERS Safety Report 16340394 (Version 1)
Quarter: 2019Q2

REPORT INFORMATION
  Report Type: Report from Study
  Country: ES (occurrence: ES)
  Receive Date: 20190522
  Receipt Date: 20190522
  Transmission Date: 20190711
  Serious: Yes (Hospitalization)
  Sender: FDA-Public Use
  Company Number: ES-TEVA-2019-ES-1052000

PATIENT
  Age: 76 Year
  Sex: Male

DRUGS (2)
  1. CLARITROMICINA (967A) [Suspect]
     Active Substance: CLARITHROMYCIN
     Indication: RESPIRATORY TRACT INFECTION
     Dosage: 500MG EVERY 12 HOURS
     Route: 042
     Dates: start: 20181211, end: 20181219
  2. CEFTRIAXONA (501A) [Suspect]
     Active Substance: CEFTRIAXONE
     Indication: RESPIRATORY TRACT INFECTION
     Dosage: 2 GRAM DAILY; 2 G DAY
     Route: 042
     Dates: start: 20181211, end: 20181219

REACTIONS (1)
  - Acute kidney injury [Recovered/Resolved]

NARRATIVE: CASE EVENT DATE: 20190109
